FAERS Safety Report 4508031-8 (Version None)
Quarter: 2004Q4

REPORT INFORMATION
  Report Type: 
  Country: None (occurrence: None)
  Receive Date: 20041123
  Receipt Date: 20030912
  Transmission Date: 20050328
  Serious: No
  Sender: FDA-Public Use
  Company Number: US-GLAXOSMITHKLINE-A0425710A

PATIENT
  Age: 63 Year
  Sex: Female
  Weight: 100 kg

DRUGS (7)
  1. WELLBUTRIN [Suspect]
     Indication: DEPRESSION
     Dosage: 150MG TWICE PER DAY
     Route: 048
     Dates: start: 20030428, end: 20030901
  2. SYNTHROID [Concomitant]
     Route: 048
     Dates: start: 20020101
  3. ATACAND [Concomitant]
     Route: 048
     Dates: start: 19990101
  4. ATENOLOL [Concomitant]
     Route: 048
     Dates: start: 19990101
  5. LIPITOR [Concomitant]
     Dosage: 20MG UNKNOWN
     Route: 048
     Dates: start: 20031001
  6. SINGULAIR [Concomitant]
     Dosage: 10MG AT NIGHT
     Route: 048
  7. HYDROCODONE [Concomitant]
     Dates: start: 20030601

REACTIONS (4)
  - ABNORMAL BEHAVIOUR [None]
  - ARTHRALGIA [None]
  - MYALGIA [None]
  - PAIN IN EXTREMITY [None]
